FAERS Safety Report 10982985 (Version 1)
Quarter: 2015Q1

REPORT INFORMATION
  Report Type: Spontaneous
  Country: US (occurrence: None)
  Receive Date: 20150302
  Receipt Date: 20150302
  Transmission Date: 20150721
  Serious: Yes (Other)
  Sender: FDA-Public Use
  Company Number: M2014-029

PATIENT
  Age: 35 Year
  Sex: Female

DRUGS (9)
  1. RHIZOPUS NIGRICANS [Suspect]
     Active Substance: RHIZOPUS STOLONIFER
     Indication: ALLERGY TEST
     Dosage: 0.50CC/INJECTION
     Dates: start: 20141010
  2. FUSARIUM VASINFECTUM OXYSPORUM [Suspect]
     Active Substance: FUSARIUM OXYSPORUM VASINFECTUM
     Indication: ALLERGY TEST
     Dosage: 0.50CC/INJECTION
     Dates: start: 20141010
  3. ALLERGENIC EXTRACT- CANDIDA. [Suspect]
     Active Substance: ALLERGENIC EXTRACT- CANDIDA
     Indication: ALLERGY TEST
     Dosage: 0.50CC/INJECTION
     Dates: start: 20141010
  4. PULLULARIA PULLULANS [Suspect]
     Active Substance: AUREOBASIDIUM PULLULANS VAR. PULLUTANS
     Indication: ALLERGY TEST
     Dosage: 0.50CC/INJECTION
     Dates: start: 20141010
  5. ASPERGILLUS NIGER VAR NIGER [Suspect]
     Active Substance: ASPERGILLUS NIGER VAR. NIGER
     Indication: ALLERGY TEST
     Dosage: 0.50CC/INJECTION
     Dates: start: 20141010
  6. ASPERGILLUS FUMIGATUS. [Suspect]
     Active Substance: ASPERGILLUS FUMIGATUS
     Indication: ALLERGY TEST
     Dosage: 0.50CC/INJECTION
     Dates: start: 20141010
  7. HELMINTHOSPORIUM INTERSEMINATUM [Suspect]
     Active Substance: DENDRYPHIELLA VINOSA
     Indication: ALLERGY TEST
     Dosage: 0.50CC/INJECTION
     Dates: start: 20141010
  8. MUCOR RACEMOSUS. [Suspect]
     Active Substance: MUCOR RACEMOSUS
     Indication: ALLERGY TEST
     Dosage: 0.50CC/INJECTION
     Dates: start: 20141010
  9. HORMODENDRUM CLADOSPORIOIDES [Suspect]
     Active Substance: CLADOSPORIUM CLADOSPORIOIDES
     Indication: ALLERGY TEST
     Dosage: 0.50CC/INJECTION
     Dates: start: 20141010

REACTIONS (3)
  - Swelling [None]
  - Injection site warmth [None]
  - Injection site pain [None]

NARRATIVE: CASE EVENT DATE: 20141010
